FAERS Safety Report 16379185 (Version 1)
Quarter: 2019Q2

REPORT INFORMATION
  Report Type: Spontaneous
  Country: NO (occurrence: NO)
  Receive Date: 20190531
  Receipt Date: 20190531
  Transmission Date: 20190711
  Serious: Yes (Hospitalization, Other)
  Sender: FDA-Public Use
  Company Number: NO-TOPROL ACQUISITION LLC-2018-TOP-000010

PATIENT
  Sex: Male

DRUGS (5)
  1. METOPROLOL SUCCINATE. [Suspect]
     Active Substance: METOPROLOL SUCCINATE
     Indication: ARRHYTHMIA PROPHYLAXIS
     Dosage: 100 MG, QD
     Route: 048
     Dates: start: 200710
  2. SIMVASTATIN BLUEFISH [Suspect]
     Active Substance: SIMVASTATIN
     Dosage: 40 MG, QD
     Dates: start: 200901
  3. ATORVASTATIN MYLAN [Suspect]
     Active Substance: ATORVASTATIN
     Indication: PRODUCT USED FOR UNKNOWN INDICATION
     Dosage: UNK
     Dates: start: 201701, end: 20170412
  4. METOPROLOL SUCCINATE. [Suspect]
     Active Substance: METOPROLOL SUCCINATE
     Dosage: 100 MG, QD
     Route: 048
     Dates: start: 20090114, end: 20170412
  5. SIMVASTATIN BLUEFISH [Suspect]
     Active Substance: SIMVASTATIN
     Indication: PRODUCT USED FOR UNKNOWN INDICATION
     Dosage: 40 MG, QD
     Route: 065
     Dates: start: 2009

REACTIONS (12)
  - Fall [Unknown]
  - Blood pressure decreased [Unknown]
  - Heart rate decreased [Unknown]
  - Feeling abnormal [Unknown]
  - Syncope [Not Recovered/Not Resolved]
  - Memory impairment [Unknown]
  - Mental fatigue [Unknown]
  - Road traffic accident [Unknown]
  - Musculoskeletal discomfort [Unknown]
  - Muscular weakness [Unknown]
  - Tremor [Recovered/Resolved]
  - Erectile dysfunction [Recovered/Resolved]

NARRATIVE: CASE EVENT DATE: 2010
